FAERS Safety Report 11154808 (Version 1)
Quarter: 2015Q2

REPORT INFORMATION
  Report Type: Spontaneous
  Country: US (occurrence: None)
  Receive Date: 20150529
  Receipt Date: 20150529
  Transmission Date: 20150821
  Serious: Yes (Hospitalization)
  Sender: FDA-Public Use
  Company Number: IPC201505-000325

PATIENT
  Age: 74 Year
  Sex: Male

DRUGS (4)
  1. MIDODRINE [Suspect]
     Active Substance: MIDODRINE
  2. LOSARTAN [Suspect]
     Active Substance: LOSARTAN
  3. FLUDROCORTISONE [Suspect]
     Active Substance: FLUDROCORTISONE
  4. CARVEDILOL. [Suspect]
     Active Substance: CARVEDILOL

REACTIONS (4)
  - Cognitive disorder [None]
  - Dizziness [None]
  - Orthostatic hypotension [None]
  - Fall [None]
